FAERS Safety Report 24076394 (Version 1)
Quarter: 2024Q3

REPORT INFORMATION
  Report Type: Spontaneous
  Country: ES (occurrence: ES)
  Receive Date: 20240711
  Receipt Date: 20240711
  Transmission Date: 20241017
  Serious: Yes (Hospitalization)
  Sender: STRIDES
  Company Number: ES-STRIDES ARCOLAB LIMITED-2024SP008129

PATIENT
  Age: 7 Decade
  Sex: Female

DRUGS (4)
  1. CINACALCET [Suspect]
     Active Substance: CINACALCET
     Indication: Hypercalcaemia
     Dosage: UNK, EVERY 24 HOURS
     Route: 065
  2. LANREOTIDE [Suspect]
     Active Substance: LANREOTIDE
     Indication: Hypercalcaemia
     Dosage: 60 MILLIGRAM, MONTHLY
     Route: 065
  3. DENOSUMAB [Suspect]
     Active Substance: DENOSUMAB
     Indication: Hypercalcaemia
     Dosage: UNK, WEEKLY
     Route: 065
  4. ZOLEDRONIC ACID [Concomitant]
     Active Substance: ZOLEDRONIC ACID
     Indication: Hypercalcaemia
     Dosage: UNK
     Route: 065

REACTIONS (1)
  - Drug ineffective [Unknown]
